FAERS Safety Report 10014465 (Version 1)
Quarter: 2014Q1

REPORT INFORMATION
  Report Type: Spontaneous
  Country: TW (occurrence: TW)
  Receive Date: 20140317
  Receipt Date: 20140317
  Transmission Date: 20141002
  Serious: Yes (Hospitalization)
  Sender: FDA-Public Use
  Company Number: TW-AMGEN-TWNSP2014018474

PATIENT
  Age: 83 Year
  Sex: 0

DRUGS (2)
  1. ENBREL [Suspect]
     Indication: RHEUMATOID ARTHRITIS
     Dosage: 25 MG, BIW
     Route: 058
     Dates: start: 20120307, end: 201211
  2. ENBREL [Suspect]
     Dosage: 25 MG, BIW
     Route: 058
     Dates: start: 201303

REACTIONS (3)
  - Pain [Recovering/Resolving]
  - Joint swelling [Recovering/Resolving]
  - Extrapulmonary tuberculosis [Unknown]
